FAERS Safety Report 5515417-1 (Version None)
Quarter: 2007Q4

REPORT INFORMATION
  Report Type: 
  Country: None (occurrence: None)
  Receive Date: 20071113
  Receipt Date: 20070312
  Transmission Date: 20080405
  Serious: No
  Sender: FDA-Public Use
  Company Number: A0639211A

PATIENT
  Age: 73 Year
  Sex: Male

DRUGS (11)
  1. COREG [Suspect]
     Dosage: 6.25MG THREE TIMES PER DAY
     Route: 048
     Dates: start: 20040101, end: 20060929
  2. HYDROCHLOROTHIAZIDE [Concomitant]
  3. HYDRALAZINE HCL [Concomitant]
  4. ISOSORBID MONONITRATE [Concomitant]
  5. ASPIRIN [Concomitant]
  6. COZAAR [Concomitant]
  7. PLAVIX [Concomitant]
  8. FELODIPINE [Concomitant]
  9. FOLIC ACID [Concomitant]
  10. TYLENOL [Concomitant]
  11. ZETIA [Concomitant]

REACTIONS (2)
  - MALAISE [None]
  - PAIN [None]
